FAERS Safety Report 13843045 (Version 1)
Quarter: 2017Q3

REPORT INFORMATION
  Report Type: Report from Study
  Country: None (occurrence: US)
  Receive Date: 20170808
  Receipt Date: 20170808
  Transmission Date: 20171127
  Serious: Yes (Other)
  Sender: FDA-Public Use
  Company Number: US-ABBVIE-17K-163-2042085-00

PATIENT
  Age: 59 Year
  Sex: Female
  Weight: 119.86 kg

DRUGS (1)
  1. HUMIRA [Suspect]
     Active Substance: ADALIMUMAB
     Indication: RHEUMATOID ARTHRITIS
     Route: 058
     Dates: start: 20170714

REACTIONS (6)
  - Gait disturbance [Not Recovered/Not Resolved]
  - Joint effusion [Recovering/Resolving]
  - Osteoarthritis [Unknown]
  - Injection site pain [Recovered/Resolved]
  - Arthralgia [Recovering/Resolving]
  - Faeces discoloured [Not Recovered/Not Resolved]

NARRATIVE: CASE EVENT DATE: 201707
